FAERS Safety Report 5930815-X (Version None)
Quarter: 2008Q4

REPORT INFORMATION
  Report Type: 
  Country: None (occurrence: None)
  Receive Date: 20081002
  Receipt Date: 20080325
  Transmission Date: 20090506
  Serious: Yes (Hospitalization)
  Sender: FDA-Public Use
  Company Number: 2008-0015866

PATIENT
  Age: 51 Year
  Sex: Female

DRUGS (3)
  1. TRUVADA [Suspect]
     Indication: HIV INFECTION
     Dates: start: 20060101, end: 20080101
  2. LOPINAVIR W/RITONAVIR (KALETRA /01506501/) [Concomitant]
  3. NON-STEROID ANTI-INFLAMMATORY DRUG (NSAID'S) [Concomitant]

REACTIONS (1)
  - RENAL FAILURE ACUTE [None]
